FAERS Safety Report 8149405-6 (Version None)
Quarter: 2012Q1

REPORT INFORMATION
  Report Type: 
  Country: None (occurrence: None)
  Receive Date: 20120218
  Receipt Date: 20111007
  Transmission Date: 20120608
  Serious: No
  Sender: FDA-Public Use
  Company Number: US-ALLERGAN-1113287US

PATIENT
  Age: 40 Year
  Sex: Female

DRUGS (3)
  1. BOTOX COSMETIC [Suspect]
     Indication: SKIN WRINKLING
     Dosage: 28 UNITS, SINGLE
     Route: 030
     Dates: start: 20111005, end: 20111005
  2. WELLBUTRIN [Concomitant]
     Indication: ANXIETY
  3. PAXIL [Concomitant]
     Indication: ANXIETY

REACTIONS (3)
  - HEADACHE [None]
  - HYPERHIDROSIS [None]
  - PALPITATIONS [None]
